FAERS Safety Report 5183144-9 (Version None)
Quarter: 2006Q4

REPORT INFORMATION
  Report Type: 
  Country: None (occurrence: None)
  Receive Date: 20061220
  Receipt Date: 20051221
  Transmission Date: 20070319
  Serious: No
  Sender: FDA-Public Use
  Company Number: US-GLAXOSMITHKLINE-A0586597A

PATIENT
  Age: 70 Year
  Sex: Female

DRUGS (2)
  1. NICODERM CQ [Suspect]
     Dates: start: 20051211, end: 20051217
  2. NICODERM CQ [Suspect]
     Dates: start: 20051218, end: 20051219

REACTIONS (4)
  - APPLICATION SITE DISCOLOURATION [None]
  - APPLICATION SITE IRRITATION [None]
  - APPLICATION SITE PRURITUS [None]
  - HYPERSENSITIVITY [None]
